FAERS Safety Report 4539301-5 (Version None)
Quarter: 2004Q4

REPORT INFORMATION
  Report Type: 
  Country: None (occurrence: None)
  Receive Date: 20041222
  Receipt Date: 20041214
  Transmission Date: 20050328
  Serious: Yes (Other)
  Sender: FDA-Public Use
  Company Number: 2004114132

PATIENT
  Age: 85 Year
  Sex: Female

DRUGS (7)
  1. TOLTERODINE (TOLTERODINE) [Suspect]
     Indication: HYPERTONIC BLADDER
     Dosage: 5 MG (5 MG), ORAL
     Route: 048
     Dates: start: 20041125, end: 20041130
  2. LEKOVIT CA (CALCIUM CARBONATE, COLECALCIFEROL) [Concomitant]
  3. ENALAPRIL (ENALAPRIL) [Concomitant]
  4. RANITIDINE [Concomitant]
  5. LEVOTHYROXINE SODIUM [Concomitant]
  6. ASPIRIN [Concomitant]
  7. NULYTELY (MACROGOL, POTASSIUM CHLORIDE, SODIUM BIRCABONATE, SODIUM CHL [Concomitant]

REACTIONS (3)
  - CONDITION AGGRAVATED [None]
  - CONFUSIONAL STATE [None]
  - DISORIENTATION [None]
